FAERS Safety Report 10045293 (Version 2)
Quarter: 2014Q2

REPORT INFORMATION
  Report Type: Spontaneous
  Country: MY (occurrence: MY)
  Receive Date: 20140328
  Receipt Date: 20140422
  Transmission Date: 20141212
  Serious: Yes (Death)
  Sender: FDA-Public Use
  Company Number: MY-B.I. PHARMACEUTICALS,INC./RIDGEFIELD-2014-BI-13239MD

PATIENT
  Sex: Female

DRUGS (3)
  1. PRADAXA [Suspect]
     Indication: PRODUCT USED FOR UNKNOWN INDICATION
     Dosage: 220 MG
     Route: 048
  2. LEXAPRO [Concomitant]
     Route: 065
  3. SODIUM VALPROATE [Concomitant]
     Indication: EPILEPSY
     Dosage: 800 MG
     Route: 065

REACTIONS (2)
  - Thrombosis [Fatal]
  - Haemorrhage [Fatal]
